FAERS Safety Report 7220538-1 (Version None)
Quarter: 2011Q1

REPORT INFORMATION
  Report Type: 
  Country: None (occurrence: None)
  Receive Date: 20110111
  Receipt Date: 20110105
  Transmission Date: 20110831
  Serious: Yes (Hospitalization)
  Sender: FDA-Public Use
  Company Number: IT-PFIZER INC-2010013374

PATIENT
  Age: 83 Year
  Sex: Male

DRUGS (6)
  1. ALLOPURINOL [Concomitant]
     Dosage: 150 MG, UNK
     Route: 048
  2. TORVAST [Suspect]
     Indication: HYPERCHOLESTEROLAEMIA
     Dosage: 10 MG, X/DAY
     Route: 048
     Dates: end: 20100101
  3. NORVASC [Concomitant]
     Dosage: 10 MG, UNK
     Route: 048
  4. AMIODAR [Suspect]
     Dosage: 200 MG, 1X/DAY
     Route: 048
     Dates: start: 20091020, end: 20100120
  5. PROSTIDE [Concomitant]
     Dosage: 5 MG, UNK
     Route: 048
  6. FUROSEMIDE [Concomitant]
     Dosage: 50 MG, UNK
     Route: 048

REACTIONS (2)
  - RESPIRATORY FAILURE [None]
  - LUNG INFILTRATION [None]
